FAERS Safety Report 7184081-0 (Version None)
Quarter: 2010Q4

REPORT INFORMATION
  Report Type: 
  Country: None (occurrence: None)
  Receive Date: 20101222
  Receipt Date: 20101210
  Transmission Date: 20110411
  Serious: Yes (Hospitalization, Other)
  Sender: FDA-Public Use
  Company Number: PHHY2010DE22216

PATIENT
  Sex: Female
  Weight: 69.388 kg

DRUGS (2)
  1. AFINITOR [Suspect]
     Indication: RENAL CELL CARCINOMA
     Dosage: 10MG/DAY
     Route: 048
     Dates: start: 20090917, end: 20100816
  2. AFINITOR [Suspect]
     Dosage: 10MG DAILY
     Route: 048
     Dates: start: 20100924

REACTIONS (4)
  - DUODENAL ULCER [None]
  - PNEUMONIA [None]
  - PYREXIA [None]
  - URINARY TRACT INFECTION [None]
